FAERS Safety Report 7790761-6 (Version None)
Quarter: 2011Q3

REPORT INFORMATION
  Report Type: 
  Country: None (occurrence: None)
  Receive Date: 20110930
  Receipt Date: 20110808
  Transmission Date: 20111222
  Serious: Yes (Hospitalization)
  Sender: FDA-Public Use
  Company Number: PHHY2010RU90354

PATIENT
  Age: 21 Year
  Sex: Male

DRUGS (7)
  1. MEROPENEM [Concomitant]
     Dosage: UNK
     Dates: start: 20101201
  2. AMIKACIN [Concomitant]
     Dosage: UNK
     Route: 042
     Dates: start: 20100501
  3. MEROPENEM [Concomitant]
     Dosage: UNK
     Dates: start: 20100501
  4. AMIKACIN [Concomitant]
     Dosage: UNK
     Dates: start: 20101101
  5. MEROPENEM [Concomitant]
     Dosage: UNK
     Dates: start: 20101101
  6. AMIKACIN [Concomitant]
     Dosage: UNK
     Dates: start: 20101201
  7. TOBI [Suspect]
     Indication: CYSTIC FIBROSIS
     Dosage: 300 MG, BID

REACTIONS (9)
  - PRODUCT COLOUR ISSUE [None]
  - DYSPNOEA [None]
  - PYREXIA [None]
  - DRUG INEFFECTIVE [None]
  - ASTHENIA [None]
  - LUNG INFECTION [None]
  - PRODUCT TASTE ABNORMAL [None]
  - PNEUMONIA [None]
  - COUGH [None]
